FAERS Safety Report 12835816 (Version 1)
Quarter: 2016Q4

REPORT INFORMATION
  Report Type: Report from Study
  Country: ES (occurrence: ES)
  Receive Date: 20161011
  Receipt Date: 20161011
  Transmission Date: 20170207
  Serious: Yes (Other)
  Sender: FDA-Public Use
  Company Number: ES-CELGENEUS-ESP-2016096451

PATIENT
  Age: 80 Year

DRUGS (1)
  1. AZACITIDINE. [Suspect]
     Active Substance: AZACITIDINE
     Indication: MYELODYSPLASTIC SYNDROME
     Route: 058

REACTIONS (5)
  - Full blood count decreased [Unknown]
  - Cognitive disorder [Unknown]
  - Cardiovascular disorder [Unknown]
  - Disease progression [Unknown]
  - Respiratory disorder [Unknown]
